FAERS Safety Report 11319266 (Version 1)
Quarter: 2015Q3

REPORT INFORMATION
  Report Type: Spontaneous
  Country: US (occurrence: None)
  Receive Date: 20150727
  Receipt Date: 20150727
  Transmission Date: 20151125
  Serious: Yes (Other)
  Sender: FDA-Public Use
  Company Number: None

PATIENT
  Age: 9 Year
  Sex: Female
  Weight: 31.75 kg

DRUGS (2)
  1. LUPRON DEPOT-PED [Suspect]
     Active Substance: LEUPROLIDE ACETATE
     Indication: DELAYED PUBERTY
     Dosage: INTO THE MUSCLE, EVERY 3 MONTHS
     Route: 030
     Dates: start: 20150605
  2. LEVOTHYROXINE. [Concomitant]
     Active Substance: LEVOTHYROXINE

REACTIONS (3)
  - Suicidal ideation [None]
  - Affective disorder [None]
  - Obsessive thoughts [None]

NARRATIVE: CASE EVENT DATE: 20150605
